FAERS Safety Report 25791495 (Version 5)
Quarter: 2025Q4

REPORT INFORMATION
  Report Type: Report from Study
  Country: EU (occurrence: EU)
  Receive Date: 20250911
  Receipt Date: 20251223
  Transmission Date: 20260118
  Serious: Yes (Hospitalization, Other)
  Sender: NOVARTIS
  Company Number: EU-002147023-NVSC2025DE138875

PATIENT
  Age: 54 Year
  Sex: Male
  Weight: 92 kg

DRUGS (25)
  1. COSENTYX [Suspect]
     Active Substance: SECUKINUMAB
     Indication: Hidradenitis
     Dosage: 300 MG, ONCE/SINGLE (PRE-FILLED PEN)
     Route: 058
     Dates: start: 20240220, end: 20240220
  2. COSENTYX [Suspect]
     Active Substance: SECUKINUMAB
     Dosage: 300 MG, ONCE/SINGLE (PRE-FILLED PEN)
     Route: 058
     Dates: start: 20240227, end: 20240227
  3. COSENTYX [Suspect]
     Active Substance: SECUKINUMAB
     Dosage: 300 MG, ONCE/SINGLE (PRE-FILLED PEN)
     Route: 058
     Dates: start: 20240305, end: 20240305
  4. COSENTYX [Suspect]
     Active Substance: SECUKINUMAB
     Dosage: 300 MG, ONCE/SINGLE (PRE-FILLED PEN)
     Route: 058
     Dates: start: 20240312, end: 20240312
  5. COSENTYX [Suspect]
     Active Substance: SECUKINUMAB
     Dosage: 300 MG, ONCE/SINGLE (PRE-FILLED PEN)
     Route: 058
     Dates: start: 20240321, end: 20240321
  6. COSENTYX [Suspect]
     Active Substance: SECUKINUMAB
     Dosage: 300 MG, ONCE/SINGLE (PRE-FILLED PEN)
     Route: 058
     Dates: start: 20240419, end: 20240419
  7. COSENTYX [Suspect]
     Active Substance: SECUKINUMAB
     Dosage: 300 MG, ONCE/SINGLE (PRE-FILLED PEN)
     Route: 058
     Dates: start: 20240521, end: 20240521
  8. COSENTYX [Suspect]
     Active Substance: SECUKINUMAB
     Dosage: 300 MG, ONCE/SINGLE (PRE-FILLED PEN)
     Route: 058
     Dates: start: 20240619, end: 20240619
  9. COSENTYX [Suspect]
     Active Substance: SECUKINUMAB
     Dosage: 300 MG, ONCE/SINGLE (PRE-FILLED PEN)
     Route: 058
     Dates: start: 20240718, end: 20240718
  10. COSENTYX [Suspect]
     Active Substance: SECUKINUMAB
     Dosage: 300 MG, ONCE/SINGLE (PRE-FILLED PEN)
     Route: 058
     Dates: start: 20240819, end: 20240819
  11. COSENTYX [Suspect]
     Active Substance: SECUKINUMAB
     Dosage: 300 MG, ONCE/SINGLE (PRE-FILLED PEN)
     Route: 058
     Dates: start: 20240919, end: 20240919
  12. COSENTYX [Suspect]
     Active Substance: SECUKINUMAB
     Dosage: 300 MG, ONCE/SINGLE (PRE-FILLED PEN)
     Route: 058
     Dates: start: 20241019, end: 20241019
  13. COSENTYX [Suspect]
     Active Substance: SECUKINUMAB
     Dosage: 300 MG, ONCE/SINGLE (PRE-FILLED PEN)
     Route: 058
     Dates: start: 20241119, end: 20241119
  14. COSENTYX [Suspect]
     Active Substance: SECUKINUMAB
     Dosage: 300 MG, ONCE/SINGLE (PRE-FILLED PEN)
     Route: 058
     Dates: start: 20241219, end: 20241219
  15. COSENTYX [Suspect]
     Active Substance: SECUKINUMAB
     Dosage: 300 MG, ONCE/SINGLE (PRE-FILLED PEN)
     Route: 058
     Dates: start: 20250119, end: 20250119
  16. COSENTYX [Suspect]
     Active Substance: SECUKINUMAB
     Dosage: 300 MG, ONCE/SINGLE (PRE-FILLED PEN)
     Route: 058
     Dates: start: 20250219, end: 20250219
  17. COSENTYX [Suspect]
     Active Substance: SECUKINUMAB
     Dosage: 300 MG, ONCE/SINGLE (PRE-FILLED PEN)
     Route: 058
     Dates: start: 20250319, end: 20250319
  18. COSENTYX [Suspect]
     Active Substance: SECUKINUMAB
     Dosage: 300 MG, ONCE/SINGLE (PRE-FILLED PEN)
     Route: 058
     Dates: start: 20250419, end: 20250419
  19. COSENTYX [Suspect]
     Active Substance: SECUKINUMAB
     Dosage: 300 MG, ONCE/SINGLE (PRE-FILLED PEN)
     Route: 058
     Dates: start: 20250519, end: 20250519
  20. COSENTYX [Suspect]
     Active Substance: SECUKINUMAB
     Dosage: 300 MG, ONCE/SINGLE (PRE-FILLED PEN)
     Route: 058
     Dates: start: 20250622, end: 20250622
  21. COSENTYX [Suspect]
     Active Substance: SECUKINUMAB
     Dosage: 300 MG, ONCE/SINGLE (PRE-FILLED PEN)
     Route: 058
     Dates: start: 20250720, end: 20250720
  22. COSENTYX [Suspect]
     Active Substance: SECUKINUMAB
     Dosage: 300 MG, ONCE/SINGLE (PRE-FILLED PEN)
     Route: 058
     Dates: start: 20250827, end: 20250827
  23. COSENTYX [Suspect]
     Active Substance: SECUKINUMAB
     Dosage: 300 MG, ONCE/SINGLE (PRE-FILLED PEN)
     Route: 058
     Dates: start: 20250924, end: 20250924
  24. COSENTYX [Suspect]
     Active Substance: SECUKINUMAB
     Dosage: 300 MG, ONCE/SINGLE (PRE-FILLED PEN)
     Route: 058
     Dates: start: 20251022, end: 20251022
  25. COSENTYX [Suspect]
     Active Substance: SECUKINUMAB
     Dosage: 300 MG, ONCE/SINGLE (PRE-FILLED PEN)
     Route: 058
     Dates: start: 20251119, end: 20251119

REACTIONS (4)
  - Erythema [Recovered/Resolved]
  - Scrotal oedema [Recovered/Resolved]
  - Penile oedema [Recovered/Resolved]
  - Erysipelas [Recovered/Resolved]

NARRATIVE: CASE EVENT DATE: 20250828
